FAERS Safety Report 14676803 (Version 1)
Quarter: 2018Q1

REPORT INFORMATION
  Report Type: Other
  Country: DE (occurrence: DE)
  Receive Date: 20180324
  Receipt Date: 20180324
  Transmission Date: 20180509
  Serious: Yes (Other)
  Sender: FDA-Public Use
  Company Number: DE-MACLEODS PHARMACEUTICALS US LTD-MAC2018011711

PATIENT

DRUGS (2)
  1. LEVOFLOXACIN 250 1A [Suspect]
     Active Substance: LEVOFLOXACIN
     Indication: PRODUCT USED FOR UNKNOWN INDICATION
     Dosage: UNK, 250 1A
     Route: 065
     Dates: start: 20171228, end: 20180101
  2. LEVOFLOXACIN. [Suspect]
     Active Substance: LEVOFLOXACIN
     Indication: ERYSIPELAS
     Dosage: 750 MG, QD
     Route: 048
     Dates: start: 20171218, end: 20171227

REACTIONS (3)
  - Stomatitis necrotising [Recovered/Resolved]
  - Pyrexia [Recovered/Resolved]
  - Gastritis [Recovered/Resolved]

NARRATIVE: CASE EVENT DATE: 20171230
